FAERS Safety Report 17986344 (Version 1)
Quarter: 2020Q3

REPORT INFORMATION
  Report Type: Report from Study
  Country: ES (occurrence: ES)
  Receive Date: 20200707
  Receipt Date: 20200707
  Transmission Date: 20201103
  Serious: Yes (Other)
  Sender: FDA-Public Use
  Company Number: ES-ROCHE-2636132

PATIENT
  Age: 52 Year
  Sex: Female

DRUGS (7)
  1. METHYLPREDNISOLONE. [Concomitant]
     Active Substance: METHYLPREDNISOLONE
     Indication: PREMEDICATION
     Dosage: DOSE: 1 GTT (DROP)
     Route: 042
     Dates: start: 20200124, end: 20200124
  2. OCRELIZUMAB. [Suspect]
     Active Substance: OCRELIZUMAB
     Indication: PRIMARY PROGRESSIVE MULTIPLE SCLEROSIS
     Dosage: DOSING FORMULATION: 300 MG/250 ML     TOTAL VOLUME ADMINISTERED: 260 ML?DATE OF NEXT DOSE OF ADMINIS
     Route: 042
     Dates: start: 20200124
  3. DEXCHLORPHENIRAMINE [Concomitant]
     Active Substance: DEXCHLORPHENIRAMINE
     Route: 042
     Dates: start: 20200214, end: 20200214
  4. PARACETAMOL [Concomitant]
     Active Substance: ACETAMINOPHEN
     Indication: PREMEDICATION
     Route: 042
     Dates: start: 20200214, end: 20200214
  5. DEXCHLORPHENIRAMINE [Concomitant]
     Active Substance: DEXCHLORPHENIRAMINE
     Indication: PREMEDICATION
     Route: 042
     Dates: start: 20200124, end: 20200124
  6. OCRELIZUMAB. [Suspect]
     Active Substance: OCRELIZUMAB
     Indication: PROGRESSIVE RELAPSING MULTIPLE SCLEROSIS
  7. METHYLPREDNISOLONE. [Concomitant]
     Active Substance: METHYLPREDNISOLONE
     Route: 042
     Dates: start: 20200214, end: 20200214

REACTIONS (1)
  - Bronchitis [Recovering/Resolving]

NARRATIVE: CASE EVENT DATE: 20200129
